FAERS Safety Report 6016202-7 (Version None)
Quarter: 2008Q4

REPORT INFORMATION
  Report Type: 
  Country: None (occurrence: None)
  Receive Date: 20081218
  Receipt Date: 20081212
  Transmission Date: 20090506
  Serious: Yes (Death)
  Sender: FDA-Public Use
  Company Number: 2008JP005742

PATIENT
  Age: 61 Year
  Sex: Female

DRUGS (11)
  1. PROGRAF [Suspect]
     Indication: RHEUMATOID ARTHRITIS
     Dosage: 0.5 MG, BID, ORAL
     Route: 048
     Dates: start: 20081011
  2. CELECOXIB [Suspect]
     Indication: RHEUMATOID ARTHRITIS
     Dosage: BID, ORAL
     Route: 048
     Dates: start: 20080729
  3. LIPITOR (ATORVASTATIN CALCIUM) PER ORAL NOS [Concomitant]
  4. RHEUMATREX PER ORAL NOS [Concomitant]
  5. PREDNISOLONE [Concomitant]
  6. FOLIAMIN (FOLIC ACID) PER ORAL NOS [Concomitant]
  7. ACTONEL (RISEDRONATE SODIUM) PER ORAL NOS [Concomitant]
  8. BAYASPIRIN PER ORAL NOS [Concomitant]
  9. MUCOSTA (REBAMIPIDE) PER ORAL NOS [Concomitant]
  10. NU-LOTAN (LOSARTAN POTASSIUM) PER ORAL NOS [Concomitant]
  11. TAKEPRON (LANSOPRAZOLE) PER ORAL NOS [Concomitant]

REACTIONS (1)
  - ACUTE MYOCARDIAL INFARCTION [None]
